FAERS Safety Report 26025743 (Version 1)
Quarter: 2025Q4

REPORT INFORMATION
  Report Type: Spontaneous
  Country: US (occurrence: None)
  Receive Date: 20251110
  Receipt Date: 20251110
  Transmission Date: 20260117
  Serious: Yes (unspecified)
  Sender: FDA-CTU
  Company Number: None

PATIENT
  Age: 64 Year
  Sex: Female

DRUGS (3)
  1. DYSPORT [Suspect]
     Active Substance: ABOBOTULINUMTOXINA
     Indication: Facial cosmetic procedure
     Dates: start: 20251013, end: 20251013
  2. MAGNESIUM [Concomitant]
     Active Substance: MAGNESIUM
  3. POTASSIUM [Concomitant]
     Active Substance: POTASSIUM

REACTIONS (1)
  - Vision blurred [None]

NARRATIVE: CASE EVENT DATE: 20251013
